FAERS Safety Report 8201501-0 (Version None)
Quarter: 2012Q1

REPORT INFORMATION
  Report Type: 
  Country: None (occurrence: None)
  Receive Date: 20120307
  Receipt Date: 20120224
  Transmission Date: 20120608
  Serious: Yes (Other)
  Sender: FDA-Public Use
  Company Number: 2012AP000542

PATIENT
  Age: 89 Year
  Sex: Female

DRUGS (2)
  1. CLARITHROMYCIN [Suspect]
     Indication: RESPIRATORY TRACT INFECTION
     Route: 048
  2. FLUOXETINE [Suspect]
     Indication: PRODUCT USED FOR UNKNOWN INDICATION
     Dosage: 20 MG;QD
     Route: 048

REACTIONS (5)
  - MYDRIASIS [None]
  - URINARY TRACT INFECTION [None]
  - DRUG INTERACTION [None]
  - SEROTONIN SYNDROME [None]
  - ATRIAL FIBRILLATION [None]
